FAERS Safety Report 8346145-5 (Version None)
Quarter: 2012Q2

REPORT INFORMATION
  Report Type: 
  Country: None (occurrence: None)
  Receive Date: 20120507
  Receipt Date: 20120423
  Transmission Date: 20120825
  Serious: Yes (Death)
  Sender: FDA-Public Use
  Company Number: UTC-018013

PATIENT
  Age: 67 Year
  Sex: Female
  Weight: 132.3 kg

DRUGS (2)
  1. REMODULIN [Suspect]
     Dosage: 86.4 UG/KG (0.06 UG/KG, 1 IN 1 MIN), SUBCUTANEOUS
     Route: 058
     Dates: start: 20111117
  2. DIURETICS (DIURETICS) [Concomitant]

REACTIONS (1)
  - DEATH [None]
